FAERS Safety Report 8193148-X (Version None)
Quarter: 2012Q1

REPORT INFORMATION
  Report Type: 
  Country: None (occurrence: None)
  Receive Date: 20120221
  Receipt Date: 20111101
  Transmission Date: 20120608
  Serious: No
  Sender: FDA-Public Use
  Company Number: 039200

PATIENT
  Sex: Female
  Weight: 83.8 kg

DRUGS (5)
  1. LEVETIRACETAM [Concomitant]
  2. ESTROSTEP [Concomitant]
  3. SYNTHROID [Concomitant]
  4. LACOSAMIDE [Suspect]
     Indication: CONVULSION
     Dosage: (200 MG BID ORAL)
     Route: 048
     Dates: start: 20091119
  5. FLONASE [Concomitant]

REACTIONS (1)
  - WEIGHT INCREASED [None]
